FAERS Safety Report 23600833 (Version 1)
Quarter: 2024Q1

REPORT INFORMATION
  Report Type: Spontaneous
  Country: US (occurrence: US)
  Receive Date: 20240306
  Receipt Date: 20240306
  Transmission Date: 20240410
  Serious: No
  Sender: FDA-Public Use
  Company Number: US-SAMSUNG BIOEPIS-SB-2023-28892

PATIENT
  Age: 52 Year
  Sex: Female

DRUGS (1)
  1. HADLIMA [Suspect]
     Active Substance: ADALIMUMAB-BWWD
     Indication: Colitis
     Dosage: UNKNOWN; STRENGTH: 40MG/0.4ML;
     Route: 065

REACTIONS (3)
  - Injection site pain [Unknown]
  - Device malfunction [Unknown]
  - Product use in unapproved indication [Unknown]

NARRATIVE: CASE EVENT DATE: 20231025
